FAERS Safety Report 23873441 (Version 5)
Quarter: 2024Q4

REPORT INFORMATION
  Report Type: Report from Study
  Country: IE (occurrence: IE)
  Receive Date: 20240520
  Receipt Date: 20241125
  Transmission Date: 20250114
  Serious: Yes (Other)
  Sender: ROCHE
  Company Number: IE-ROCHE-3562201

PATIENT
  Sex: Female

DRUGS (4)
  1. TOCILIZUMAB [Suspect]
     Active Substance: TOCILIZUMAB
     Indication: Product used for unknown indication
     Dosage: 162 MGS X 1 PRE-FILLED PEN
     Route: 058
     Dates: start: 20240509
  2. TOCILIZUMAB [Suspect]
     Active Substance: TOCILIZUMAB
     Route: 058
     Dates: start: 20240507
  3. TOCILIZUMAB [Suspect]
     Active Substance: TOCILIZUMAB
     Route: 058
     Dates: start: 20240510
  4. TOCILIZUMAB [Suspect]
     Active Substance: TOCILIZUMAB
     Route: 058

REACTIONS (13)
  - Pain [Unknown]
  - Hypoaesthesia [Unknown]
  - Pharyngeal ulceration [Unknown]
  - Conjunctivitis [Recovered/Resolved]
  - Tongue ulceration [Recovering/Resolving]
  - Eye infection [Recovering/Resolving]
  - Muscle spasms [Recovering/Resolving]
  - Influenza [Not Recovered/Not Resolved]
  - Lower respiratory tract infection [Not Recovered/Not Resolved]
  - Immunodeficiency [Not Recovered/Not Resolved]
  - Neutrophil count decreased [Not Recovered/Not Resolved]
  - Mouth ulceration [Not Recovered/Not Resolved]
  - Illness [Unknown]
